FAERS Safety Report 21074115 (Version 3)
Quarter: 2022Q4

REPORT INFORMATION
  Report Type: Spontaneous
  Country: US (occurrence: US)
  Receive Date: 20220713
  Receipt Date: 20221021
  Transmission Date: 20230112
  Serious: No
  Sender: FDA-Public Use
  Company Number: US-BRISTOL-MYERS SQUIBB COMPANY-2022-064426

PATIENT
  Age: 51 Year
  Sex: Female
  Weight: 197.77 kg

DRUGS (2)
  1. REVLIMID [Suspect]
     Active Substance: LENALIDOMIDE
     Indication: Plasma cell myeloma
     Route: 048
     Dates: start: 20210909
  2. REVLIMID [Suspect]
     Active Substance: LENALIDOMIDE
     Dosage: FREQ: 1 QD FOR 21 DAYS ON AND 7 DAYS OFF
     Route: 048
     Dates: start: 20210830

REACTIONS (5)
  - Pain in extremity [Recovering/Resolving]
  - Pain [Recovering/Resolving]
  - Illness [Unknown]
  - Diarrhoea [Recovered/Resolved]
  - Fatigue [Recovered/Resolved]
